FAERS Safety Report 5422689-0 (Version None)
Quarter: 2007Q3

REPORT INFORMATION
  Report Type: 
  Country: None (occurrence: None)
  Receive Date: 20070822
  Receipt Date: 20070816
  Transmission Date: 20080115
  Serious: Yes (Death)
  Sender: FDA-Public Use
  Company Number: FR-BOEHRINGER INGELHEIM PHARMACEUTICALS, INC.-2007-BP-18331YA

PATIENT
  Sex: Male

DRUGS (20)
  1. TAMSULOSIN HCL [Suspect]
     Route: 048
  2. FLURBIPROFEN [Suspect]
     Route: 048
     Dates: start: 20070606, end: 20070717
  3. PAROXETINE [Suspect]
     Route: 048
  4. COMTAN [Suspect]
     Indication: PARKINSON'S DISEASE
     Route: 048
  5. SINEMET [Suspect]
     Route: 048
  6. REQUIP [Suspect]
     Route: 048
  7. MODOPAR [Suspect]
     Route: 048
  8. IMOVANE [Suspect]
     Route: 048
  9. MOTILIUM [Suspect]
     Route: 048
  10. PERMIXON [Suspect]
     Route: 048
  11. XANAX [Suspect]
     Route: 048
     Dates: start: 20070717, end: 20070717
  12. PANTOPRAZOLE SODIUM [Suspect]
     Route: 048
  13. ULTIVA [Suspect]
     Route: 042
     Dates: start: 20070718, end: 20070718
  14. PROPOFOL [Suspect]
     Route: 042
     Dates: start: 20070718, end: 20070718
  15. ATROPINE [Suspect]
     Route: 042
     Dates: start: 20070718, end: 20070718
  16. ACETAMINOPHEN [Suspect]
     Route: 042
     Dates: start: 20070718, end: 20070718
  17. KETOPROFEN [Suspect]
     Route: 042
     Dates: start: 20070718, end: 20070718
  18. MORPHINE [Suspect]
     Route: 042
     Dates: start: 20070718, end: 20070718
  19. OXACILLIN [Suspect]
     Route: 042
     Dates: start: 20070718, end: 20070718
  20. NICARDIPINE HCL [Suspect]
     Route: 042
     Dates: start: 20070718, end: 20070718

REACTIONS (1)
  - CEREBRAL HAEMATOMA [None]
